FAERS Safety Report 8307034-5 (Version None)
Quarter: 2012Q2

REPORT INFORMATION
  Report Type: 
  Country: None (occurrence: None)
  Receive Date: 20120424
  Receipt Date: 20120418
  Transmission Date: 20120825
  Serious: Yes (Other)
  Sender: FDA-Public Use
  Company Number: PHHY2012JP025097

PATIENT
  Age: 52 Year
  Sex: Female

DRUGS (2)
  1. NOLVADEX [Concomitant]
     Route: 048
  2. FEMARA [Suspect]
     Dosage: UNK
     Dates: start: 20120201

REACTIONS (7)
  - GLAUCOMA [None]
  - HYPERTHERMIA [None]
  - ARTHRALGIA [None]
  - EYE PAIN [None]
  - TINNITUS [None]
  - INTRAOCULAR PRESSURE INCREASED [None]
  - INSOMNIA [None]
